FAERS Safety Report 7180330-3 (Version None)
Quarter: 2010Q4

REPORT INFORMATION
  Report Type: 
  Country: None (occurrence: None)
  Receive Date: 20101221
  Receipt Date: 20101215
  Transmission Date: 20110411
  Serious: Yes (Other)
  Sender: FDA-Public Use
  Company Number: A0860616A

PATIENT
  Age: 53 Year
  Sex: Male

DRUGS (3)
  1. REQUIP XL [Suspect]
     Indication: PARKINSON'S DISEASE
     Dosage: 10MG PER DAY
     Route: 048
     Dates: start: 20080701
  2. AZILECT [Concomitant]
  3. UNKNOWN MEDICATION [Concomitant]

REACTIONS (8)
  - CLUMSINESS [None]
  - DRUG EFFECT DECREASED [None]
  - NAUSEA [None]
  - NERVOUSNESS [None]
  - ORTHOSTATIC HYPOTENSION [None]
  - PARKINSON'S DISEASE [None]
  - PSYCHOMOTOR HYPERACTIVITY [None]
  - TREMOR [None]
